FAERS Safety Report 23140293 (Version 1)
Quarter: 2023Q4

REPORT INFORMATION
  Report Type: Spontaneous
  Country: NL (occurrence: NL)
  Receive Date: 20231102
  Receipt Date: 20231102
  Transmission Date: 20240109
  Serious: Yes (Other)
  Sender: FDA-Public Use
  Company Number: NL-NOVPHSZ-PHHY2018NL045905

PATIENT
  Age: 13 Month
  Sex: Male

DRUGS (8)
  1. ITRACONAZOLE [Interacting]
     Active Substance: ITRACONAZOLE
     Indication: Prophylaxis
     Dosage: UNK
     Route: 065
  2. VORICONAZOLE [Interacting]
     Active Substance: VORICONAZOLE
     Dosage: LOADING DOSE
     Route: 042
  3. VORICONAZOLE [Interacting]
     Active Substance: VORICONAZOLE
     Dosage: 18 MG/KG, UNK
     Route: 042
  4. VORICONAZOLE [Interacting]
     Active Substance: VORICONAZOLE
     Dosage: 24 MG/KG, (MAINTAINANCE DOSE)
     Route: 042
  5. VORICONAZOLE [Interacting]
     Active Substance: VORICONAZOLE
     Dosage: 27 MG/KG, (LOADING DOSE)
     Route: 042
  6. VORICONAZOLE [Interacting]
     Active Substance: VORICONAZOLE
     Dosage: 6 MG/KG, TID
     Route: 042
  7. VORICONAZOLE [Interacting]
     Active Substance: VORICONAZOLE
     Dosage: 8 MG/KG, TID (MAINTENANCE DOSE)
     Route: 042
  8. VORICONAZOLE [Interacting]
     Active Substance: VORICONAZOLE
     Indication: Aspergillus infection
     Dosage: 9 MG/KG, TID (LOADING DOSE)
     Route: 042

REACTIONS (5)
  - Cardiovascular insufficiency [Unknown]
  - Drug level above therapeutic [Recovered/Resolved]
  - Hepatotoxicity [Unknown]
  - Drug interaction [Unknown]
  - Off label use [Unknown]
